FAERS Safety Report 21323649 (Version 1)
Quarter: 2022Q3

REPORT INFORMATION
  Report Type: Other
  Country: US (occurrence: US)
  Receive Date: 20220912
  Receipt Date: 20220912
  Transmission Date: 20221027
  Serious: No
  Sender: FDA-Public Use
  Company Number: US-LEADIANT BIOSCIENCES INC-2021STPI000379

PATIENT
  Sex: Female

DRUGS (1)
  1. MATULANE [Suspect]
     Active Substance: PROCARBAZINE HYDROCHLORIDE
     Indication: Hodgkin^s disease
     Dosage: 150 MILLIGRAM, DAILY AT BEDTIME FOR 7 DAYS
     Route: 048
     Dates: start: 20211213

REACTIONS (3)
  - Back pain [Unknown]
  - Alopecia [Unknown]
  - Dyspepsia [Unknown]
